FAERS Safety Report 10291586 (Version 2)
Quarter: 2014Q3

REPORT INFORMATION
  Report Type: Report from Study
  Country: IT (occurrence: IT)
  Receive Date: 20140710
  Receipt Date: 20140712
  Transmission Date: 20150326
  Serious: Yes (Hospitalization)
  Sender: FDA-Public Use
  Company Number: PHHY2014IT082300

PATIENT
  Sex: Male

DRUGS (11)
  1. FLUCONAZOLE. [Suspect]
     Active Substance: FLUCONAZOLE
     Indication: FEBRILE NEUTROPENIA
     Dosage: 400 MG, QD
     Route: 048
  2. OMEPRAZOLE. [Concomitant]
     Active Substance: OMEPRAZOLE
     Dates: start: 20121228, end: 20130502
  3. CEFTRIAXONE. [Concomitant]
     Active Substance: CEFTRIAXONE
     Dates: start: 20130301, end: 20130305
  4. RITUXIMAB [Concomitant]
     Active Substance: RITUXIMAB
     Route: 058
     Dates: start: 20121228, end: 20130508
  5. ALLOPURINOL. [Suspect]
     Active Substance: ALLOPURINOL
     Indication: TUMOUR LYSIS SYNDROME
     Dosage: 300 MG, QD
     Route: 048
     Dates: start: 20121228, end: 20130502
  6. PREDNISONE. [Suspect]
     Active Substance: PREDNISONE
  7. ACICLOVIR [Concomitant]
     Active Substance: ACYCLOVIR
     Dates: start: 20130502
  8. LANSOPRAZOLE. [Suspect]
     Active Substance: LANSOPRAZOLE
  9. FILGRASTIM [Suspect]
     Active Substance: FILGRASTIM
  10. HEPARIN [Concomitant]
     Active Substance: HEPARIN SODIUM
  11. LEVOFLOXACIN [Suspect]
     Active Substance: LEVOFLOXACIN
     Indication: PYREXIA
     Dosage: 500 MG, QD
     Route: 048
     Dates: start: 20130308, end: 20130322

REACTIONS (2)
  - Pulmonary embolism [Recovered/Resolved]
  - Febrile neutropenia [Recovered/Resolved]

NARRATIVE: CASE EVENT DATE: 20130323
